FAERS Safety Report 5543269-2 (Version None)
Quarter: 2007Q4

REPORT INFORMATION
  Report Type: 
  Country: None (occurrence: None)
  Receive Date: 20071206
  Receipt Date: 20071127
  Transmission Date: 20080405
  Serious: Yes (Hospitalization)
  Sender: FDA-Public Use
  Company Number: 2007BI021427

PATIENT
  Age: 52 Year
  Sex: Female
  Weight: 65.7716 kg

DRUGS (1)
  1. NATALIZUMAB [Suspect]
     Indication: MULTIPLE SCLEROSIS
     Dosage: 300 MG;QM;IV
     Route: 042
     Dates: start: 20070726

REACTIONS (5)
  - CEREBRAL HAEMORRHAGE TRAUMATIC [None]
  - CONVULSION [None]
  - FALL [None]
  - HEAD INJURY [None]
  - INFLUENZA LIKE ILLNESS [None]
